FAERS Safety Report 12741927 (Version 1)
Quarter: 2016Q3

REPORT INFORMATION
  Report Type: Spontaneous
  Country: US (occurrence: US)
  Receive Date: 20160914
  Receipt Date: 20160914
  Transmission Date: 20161109
  Serious: No
  Sender: FDA-Public Use
  Company Number: US-ASTRAZENECA-2016SE93884

PATIENT
  Sex: Female

DRUGS (3)
  1. MOVANTIK [Suspect]
     Active Substance: NALOXEGOL OXALATE
     Indication: CONSTIPATION
     Dosage: UNKNOWN
     Route: 048
  2. METHADONE [Concomitant]
     Active Substance: METHADONE HYDROCHLORIDE
     Indication: PAIN
     Dosage: UNKNOWN
     Route: 065
  3. SENNAKOT [Concomitant]
     Dosage: UNKNOWN
     Route: 065

REACTIONS (4)
  - Feeling cold [Unknown]
  - Vomiting [Unknown]
  - Decreased activity [Unknown]
  - Diarrhoea [Unknown]
